FAERS Safety Report 24894235 (Version 1)
Quarter: 2025Q1

REPORT INFORMATION
  Report Type: Spontaneous
  Country: GB (occurrence: GB)
  Receive Date: 20250128
  Receipt Date: 20250128
  Transmission Date: 20250408
  Serious: Yes (Other)
  Sender: Haleon PLC
  Company Number: GB-KENVUE-20241000371

PATIENT

DRUGS (1)
  1. NICORETTE [Suspect]
     Active Substance: NICOTINE
     Indication: Smoking cessation therapy
     Route: 048

REACTIONS (5)
  - Myocardial infarction [Unknown]
  - Drug dependence [Not Recovered/Not Resolved]
  - Cardiac disorder [Unknown]
  - Depression [Unknown]
  - Irritability [Unknown]
